FAERS Safety Report 9234387 (Version 1)
Quarter: 2013Q1

REPORT INFORMATION
  Report Type: Spontaneous
  Country: US (occurrence: None)
  Receive Date: 20121031
  Receipt Date: 20121031
  Transmission Date: 20140127
  Serious: No
  Sender: FDA-Public Use
  Company Number: PHEH2012US012604

PATIENT
  Age: 59 Year
  Sex: Female

DRUGS (1)
  1. GILENYA (FTY) CAPSULE, 0.5MG [Suspect]
     Indication: MULTIPLE SCLEROSIS
     Dates: start: 20101201, end: 20120621

REACTIONS (3)
  - Rash [None]
  - Blood pressure increased [None]
  - Diarrhoea [None]
